FAERS Safety Report 11292076 (Version 1)
Quarter: 2015Q3

REPORT INFORMATION
  Report Type: Spontaneous
  Country: FR (occurrence: FR)
  Receive Date: 20150722
  Receipt Date: 20150722
  Transmission Date: 20151125
  Serious: Yes (Death, Hospitalization)
  Sender: FDA-Public Use
  Company Number: FR-BRISTOL-MYERS SQUIBB COMPANY-BMS-2015-048004

PATIENT
  Age: 67 Year
  Sex: Male

DRUGS (4)
  1. ERBITUX [Suspect]
     Active Substance: CETUXIMAB
     Indication: VOCAL CORD NEOPLASM
     Dosage: UNK UNK, QCYCLE
     Route: 042
     Dates: start: 200808
  2. TAXOTERE [Suspect]
     Active Substance: DOCETAXEL
     Indication: VOCAL CORD NEOPLASM
     Dosage: UNK
     Route: 042
     Dates: start: 200808
  3. FLUOROURACIL. [Suspect]
     Active Substance: FLUOROURACIL
     Indication: VOCAL CORD NEOPLASM
     Dosage: UNK
     Route: 042
     Dates: start: 200808
  4. CARBOPLATIN. [Suspect]
     Active Substance: CARBOPLATIN
     Indication: VOCAL CORD NEOPLASM
     Dosage: 75 MG/M2, QCYCLE
     Route: 042
     Dates: start: 200808

REACTIONS (1)
  - Acute myeloid leukaemia [Fatal]

NARRATIVE: CASE EVENT DATE: 20140826
